FAERS Safety Report 10610996 (Version 1)
Quarter: 2014Q4

REPORT INFORMATION
  Report Type: Spontaneous
  Country: FR (occurrence: FR)
  Receive Date: 20141126
  Receipt Date: 20141126
  Transmission Date: 20150529
  Serious: Yes (Other)
  Sender: FDA-Public Use
  Company Number: FR-BRISTOL-MYERS SQUIBB COMPANY-21614367

PATIENT
  Age: 59 Year
  Sex: Male

DRUGS (3)
  1. ORENCIA [Suspect]
     Active Substance: ABATACEPT
     Indication: RHEUMATOID ARTHRITIS
     Route: 042
     Dates: start: 201209
  2. REMICADE [Suspect]
     Active Substance: INFLIXIMAB
     Indication: RHEUMATOID ARTHRITIS
     Route: 042
     Dates: start: 200511, end: 201007
  3. DOLIPRANE [Concomitant]
     Active Substance: ACETAMINOPHEN

REACTIONS (1)
  - Guttate psoriasis [Recovered/Resolved]

NARRATIVE: CASE EVENT DATE: 20140820
